FAERS Safety Report 15773157 (Version 1)
Quarter: 2018Q4

REPORT INFORMATION
  Report Type: Spontaneous
  Country: NO (occurrence: NO)
  Receive Date: 20181228
  Receipt Date: 20181228
  Transmission Date: 20190205
  Serious: Yes (Other)
  Sender: FDA-Public Use
  Company Number: NO-IMPAX LABORATORIES, LLC-2018-IPXL-04404

PATIENT
  Age: 68 Year
  Sex: Female

DRUGS (5)
  1. PHENANTOIN [Concomitant]
     Indication: EPILEPSY
     Dosage: 200 MILLIGRAM, DAILY
     Route: 065
  2. PHENANTOIN [Concomitant]
     Dosage: UNK, DOSE INCREASED
     Route: 065
  3. DIVALPROEX SODIUM ER [Suspect]
     Active Substance: DIVALPROEX SODIUM
     Dosage: UNK,
     Route: 065
  4. DIVALPROEX SODIUM ER [Suspect]
     Active Substance: DIVALPROEX SODIUM
     Indication: EPILEPSY
     Dosage: 1800 MILLIGRAM, DAILY
     Route: 065
  5. FENEMAL [Concomitant]
     Active Substance: PHENOBARBITAL
     Indication: EPILEPSY
     Dosage: 50 MILLIGRAM, DAILY
     Route: 065

REACTIONS (3)
  - Ileus [Recovering/Resolving]
  - Hyperammonaemic encephalopathy [Recovering/Resolving]
  - Carnitine deficiency [Recovering/Resolving]
